FAERS Safety Report 10245807 (Version 1)
Quarter: 2014Q2

REPORT INFORMATION
  Report Type: Spontaneous
  Country: US (occurrence: US)
  Receive Date: 20140619
  Receipt Date: 20140619
  Transmission Date: 20141212
  Serious: Yes (Hospitalization)
  Sender: FDA-Public Use
  Company Number: US-BIOGENIDEC-2014BI056022

PATIENT
  Sex: Female

DRUGS (1)
  1. TECFIDERA [Suspect]
     Indication: MULTIPLE SCLEROSIS
     Dates: start: 2013

REACTIONS (7)
  - Chest discomfort [Unknown]
  - Throat tightness [Unknown]
  - Flushing [Unknown]
  - Erythema [Unknown]
  - Burning sensation [Unknown]
  - Dysphagia [Unknown]
  - Paraesthesia [Unknown]
